FAERS Safety Report 23848588 (Version 1)
Quarter: 2024Q2

REPORT INFORMATION
  Report Type: Spontaneous
  Country: US (occurrence: None)
  Receive Date: 20240511
  Receipt Date: 20240511
  Transmission Date: 20240716
  Serious: Yes (Hospitalization)
  Sender: FDA-Public Use
  Company Number: None

PATIENT
  Age: 87 Year
  Sex: Male
  Weight: 104 kg

DRUGS (2)
  1. FENTANYL [Suspect]
     Active Substance: FENTANYL\FENTANYL CITRATE
     Indication: Vascular operation
     Dosage: FREQUENCY : UNKNOWN;?
     Route: 042
     Dates: start: 20211208, end: 20211208
  2. MEGESTROL ACETATE [Suspect]
     Active Substance: MEGESTROL ACETATE
     Indication: Decreased appetite
     Dosage: FREQUENCY : UNKNOWN;?
     Route: 048
     Dates: start: 20211205

REACTIONS (4)
  - Agitation [None]
  - Confusional state [None]
  - Disorientation [None]
  - Abnormal behaviour [None]

NARRATIVE: CASE EVENT DATE: 20211208
